FAERS Safety Report 9068759 (Version 1)
Quarter: 2013Q1

REPORT INFORMATION
  Report Type: Spontaneous
  Country: US (occurrence: None)
  Receive Date: 20130212
  Receipt Date: 20130212
  Transmission Date: 20140127
  Serious: Yes (Other)
  Sender: FDA-Public Use
  Company Number: None

PATIENT
  Sex: Female

DRUGS (1)
  1. ADCIRCA [Suspect]
     Indication: PULMONARY ARTERIAL HYPERTENSION
     Dosage: 20MG ORAL 2 TABLETS DAILY
     Route: 048
     Dates: start: 20130201

REACTIONS (3)
  - Pain in extremity [None]
  - Back pain [None]
  - Musculoskeletal pain [None]
